FAERS Safety Report 8097175-2 (Version None)
Quarter: 2012Q1

REPORT INFORMATION
  Report Type: 
  Country: None (occurrence: None)
  Receive Date: 20120126
  Receipt Date: 20120116
  Transmission Date: 20120608
  Serious: Yes (Other)
  Sender: FDA-Public Use
  Company Number: 2012P1003008

PATIENT
  Age: 10 Year
  Sex: Male

DRUGS (1)
  1. RISPERIDONE [Suspect]
     Indication: AGITATION
     Dosage: 1 MG; QW, 0.5 MG; QD;, 0.25 MG;QD;

REACTIONS (4)
  - URINARY INCONTINENCE [None]
  - FAECAL INCONTINENCE [None]
  - DEFAECATION URGENCY [None]
  - MICTURITION URGENCY [None]
